FAERS Safety Report 19584481 (Version 2)
Quarter: 2021Q3

REPORT INFORMATION
  Report Type: Spontaneous
  Country: US (occurrence: US)
  Receive Date: 20210720
  Receipt Date: 20210727
  Transmission Date: 20211014
  Serious: Yes (Hospitalization, Other)
  Sender: FDA-Public Use
  Company Number: US-ALLERGAN-2126063US

PATIENT
  Sex: Female
  Weight: 48.8 kg

DRUGS (3)
  1. CITALOPRAM HYDROBROMIDE UNK [Suspect]
     Active Substance: CITALOPRAM HYDROBROMIDE
     Indication: PRODUCT USED FOR UNKNOWN INDICATION
     Dosage: 30 MG, INCREASED FROM 10 MG OVER A 2?WEEK PERIOD BEFORE ED REFERRAL.
     Route: 065
  2. RISPERIDONE. [Suspect]
     Active Substance: RISPERIDONE
     Indication: PRODUCT USED FOR UNKNOWN INDICATION
     Dosage: 1 MG, BID
     Route: 065
  3. CITALOPRAM HYDROBROMIDE UNK [Suspect]
     Active Substance: CITALOPRAM HYDROBROMIDE
     Dosage: 10 MG
     Route: 065

REACTIONS (8)
  - Delusion [Recovered/Resolved]
  - Somatic symptom disorder of pregnancy [Recovered/Resolved]
  - Restlessness [Unknown]
  - Insomnia [Unknown]
  - Product use in unapproved indication [Unknown]
  - Drug interaction [Recovered/Resolved]
  - Agitation [Recovering/Resolving]
  - Hyperprolactinaemia [Recovered/Resolved]
